FAERS Safety Report 25271272 (Version 1)
Quarter: 2025Q2

REPORT INFORMATION
  Report Type: Spontaneous
  Country: US (occurrence: US)
  Receive Date: 20250506
  Receipt Date: 20250506
  Transmission Date: 20250717
  Serious: Yes (Hospitalization, Other)
  Sender: EPIC PHARM
  Company Number: US-EPICPHARMA-US-2025EPCLIT00532

PATIENT
  Age: 17 Year
  Sex: Female

DRUGS (2)
  1. ETHOSUXIMIDE [Suspect]
     Active Substance: ETHOSUXIMIDE
     Indication: Generalised tonic-clonic seizure
     Route: 065
  2. BRIVARACETAM [Concomitant]
     Active Substance: BRIVARACETAM
     Route: 065

REACTIONS (2)
  - Autoimmune aplastic anaemia [Recovering/Resolving]
  - Lupus-like syndrome [Unknown]
